FAERS Safety Report 7183902-5 (Version None)
Quarter: 2010Q4

REPORT INFORMATION
  Report Type: 
  Country: None (occurrence: None)
  Receive Date: 20101222
  Receipt Date: 20101213
  Transmission Date: 20110411
  Serious: Yes (Death, Other)
  Sender: FDA-Public Use
  Company Number: US-ROCHE-747719

PATIENT
  Age: 64 Year
  Sex: Female

DRUGS (3)
  1. BEVACIZUMAB [Suspect]
     Indication: OLIGODENDROGLIOMA
     Dosage: ONLY ONE CYCLE WAS RECEIVED.
     Route: 065
  2. CARMUSTINE [Interacting]
     Indication: OLIGODENDROGLIOMA
     Route: 065
  3. IRINOTECAN HCL [Concomitant]
     Indication: OLIGODENDROGLIOMA

REACTIONS (4)
  - DRUG INTERACTION [None]
  - HYDROCEPHALUS [None]
  - INTRACRANIAL HYPOTENSION [None]
  - WOUND INFECTION [None]
